FAERS Safety Report 20839921 (Version 1)
Quarter: 2022Q2

REPORT INFORMATION
  Report Type: Spontaneous
  Country: US (occurrence: None)
  Receive Date: 20220516
  Receipt Date: 20220516
  Transmission Date: 20220721
  Serious: Yes (Life-Threatening, Hospitalization)
  Sender: FDA-Public Use
  Company Number: None

PATIENT
  Age: 71 Year
  Sex: Male
  Weight: 104.3 kg

DRUGS (25)
  1. EVUSHELD [Suspect]
     Active Substance: CILGAVIMAB\TIXAGEVIMAB
     Indication: COVID-19 prophylaxis
     Dosage: FREQUENCY : ONCE;?[I^LXAG^CLLGAV 300-300 MGL!ONCE                I!INTRAMUSCULARLY          ?
     Route: 030
     Dates: start: 20220510, end: 20220510
  2. Acetaminophen-codeine [Concomitant]
  3. Albuterol [Concomitant]
  4. ASPIRIN [Concomitant]
     Active Substance: ASPIRIN
  5. AZITHROMYCIN [Concomitant]
  6. BENZONATATE [Concomitant]
  7. CA CARB/VIT D3 [Concomitant]
  8. MULTIVITAMIN [Concomitant]
  9. FOLIC ACID [Concomitant]
  10. FUROSEMIDE [Concomitant]
     Active Substance: FUROSEMIDE
  11. GABAPENTIN [Concomitant]
     Active Substance: GABAPENTIN
  12. COMBIVENT RESPIMAT [Concomitant]
  13. TOPROLOL XL [Concomitant]
  14. SINGULAIR [Concomitant]
     Active Substance: MONTELUKAST SODIUM
  15. BACTROBAN OINT [Concomitant]
  16. PRILOSEC [Concomitant]
     Active Substance: OMEPRAZOLE MAGNESIUM
  17. MIRAPEX [Concomitant]
     Active Substance: PRAMIPEXOLE DIHYDROCHLORIDE
  18. PRAVACHOL [Concomitant]
     Active Substance: PRAVASTATIN SODIUM
  19. PREDNISONE [Concomitant]
     Active Substance: PREDNISONE
  20. SIROLIMUS [Concomitant]
     Active Substance: SIROLIMUS
  21. BACTRIMSS MWF [Concomitant]
  22. PROGRAF QAM AND QHS [Concomitant]
  23. SPIRIVA RESPIMAT [Concomitant]
  24. VITAMINS [Concomitant]
     Active Substance: VITAMINS
  25. FLUORURACIL CREAM [Concomitant]

REACTIONS (2)
  - Pulmonary embolism [None]
  - Oedema peripheral [None]

NARRATIVE: CASE EVENT DATE: 20220513
